FAERS Safety Report 5296249-9 (Version None)
Quarter: 2007Q2

REPORT INFORMATION
  Report Type: 
  Country: None (occurrence: None)
  Receive Date: 20070406
  Receipt Date: 20070322
  Transmission Date: 20071010
  Serious: Yes (Other)
  Sender: FDA-Public Use
  Company Number: GXKR2007NL02977

PATIENT
  Age: 71 Year
  Sex: Male
  Weight: 104 kg

DRUGS (6)
  1. PARACETAMOL SANDOZ (NGX)(PARACETAMOL) TABLET, 100MG [Suspect]
     Dosage: 100 MG, QD, ORAL
     Route: 048
     Dates: start: 20011115
  2. COZAAR [Concomitant]
  3. AMARYL [Concomitant]
  4. METOPROLOL TARTRATE [Concomitant]
  5. ACTOS (PIOGLITAZONE, PIOGLITAZONE HYDROCHLORIDE) [Concomitant]
  6. METFORMIN HCL [Concomitant]

REACTIONS (2)
  - GAIT DISTURBANCE [None]
  - MYALGIA [None]
